FAERS Safety Report 18880358 (Version 2)
Quarter: 2021Q1

REPORT INFORMATION
  Report Type: Spontaneous
  Country: FR (occurrence: FR)
  Receive Date: 20210211
  Receipt Date: 20210218
  Transmission Date: 20210420
  Serious: Yes (Life-Threatening, Other)
  Sender: FDA-Public Use
  Company Number: FR-BAXTER-2021BAX002571

PATIENT
  Age: 49 Year
  Sex: Female

DRUGS (2)
  1. METRONIDAZOLE BAXTER 0,5 POUR CENT, SOLUTION INJECTABLE EN POCHE [Suspect]
     Active Substance: METRONIDAZOLE
     Indication: PRODUCT USED FOR UNKNOWN INDICATION
     Route: 065
  2. LEVOTHYROXINE. [Concomitant]
     Active Substance: LEVOTHYROXINE
     Indication: PRODUCT USED FOR UNKNOWN INDICATION
     Route: 065

REACTIONS (2)
  - Rash maculo-papular [Unknown]
  - Hepatic failure [Unknown]
